FAERS Safety Report 9230839 (Version 2)
Quarter: 2013Q2

REPORT INFORMATION
  Report Type: Report from Study
  Country: CA (occurrence: CA)
  Receive Date: 20130415
  Receipt Date: 20130513
  Transmission Date: 20140414
  Serious: Yes (Other)
  Sender: FDA-Public Use
  Company Number: PHHY2012CA088499

PATIENT
  Sex: Female

DRUGS (2)
  1. GLEEVEC [Suspect]
     Indication: CHRONIC MYELOID LEUKAEMIA
     Dosage: 400 MG, QD
     Route: 048
     Dates: start: 201208
  2. GLEEVEC [Suspect]
     Dosage: 400 MG, QD
     Route: 048
     Dates: end: 20130505

REACTIONS (7)
  - Lung disorder [Unknown]
  - Pneumonia [Unknown]
  - Blood blister [Unknown]
  - Lip blister [Unknown]
  - Oral mucosal blistering [Unknown]
  - Skin hypertrophy [Unknown]
  - Back disorder [Unknown]
